FAERS Safety Report 7739222-0 (Version None)
Quarter: 2011Q3

REPORT INFORMATION
  Report Type: 
  Country: None (occurrence: None)
  Receive Date: 20110909
  Receipt Date: 20110902
  Transmission Date: 20111222
  Serious: Yes (Life-Threatening, Hospitalization, Other)
  Sender: FDA-Public Use
  Company Number: JP-PFIZER INC-2011206214

PATIENT
  Age: 56 Year
  Sex: Male

DRUGS (2)
  1. SULFASALAZINE [Suspect]
     Indication: COLITIS ULCERATIVE
     Dosage: 3G PER DAY
     Route: 048
     Dates: start: 20110825, end: 20110830
  2. ASACOL [Concomitant]
     Indication: COLITIS ULCERATIVE
     Dosage: 2400MG PER DAY
     Route: 048
     Dates: start: 20110623, end: 20110824

REACTIONS (5)
  - OCULOMUCOCUTANEOUS SYNDROME [None]
  - WHITE BLOOD CELL COUNT INCREASED [None]
  - C-REACTIVE PROTEIN INCREASED [None]
  - RASH [None]
  - BODY TEMPERATURE INCREASED [None]
